FAERS Safety Report 17243307 (Version 1)
Quarter: 2019Q4

REPORT INFORMATION
  Report Type: Spontaneous
  Country: US (occurrence: US)
  Receive Date: 20191212
  Receipt Date: 20191212
  Transmission Date: 20200122
  Serious: Yes (Other)
  Sender: FDA-Public Use
  Company Number: None

PATIENT
  Age: 25 Year
  Sex: Male

DRUGS (2)
  1. VILAZODONE [Suspect]
     Active Substance: VILAZODONE
     Indication: DEPRESSION
     Dates: start: 201612, end: 201807
  2. SERTRALINE [Suspect]
     Active Substance: SERTRALINE HYDROCHLORIDE
     Indication: DEPRESSION
     Route: 048
     Dates: start: 201111, end: 201412

REACTIONS (5)
  - Erectile dysfunction [None]
  - Anorgasmia [None]
  - Erection increased [None]
  - Sexual dysfunction [None]
  - Orgasm abnormal [None]

NARRATIVE: CASE EVENT DATE: 20170315
